FAERS Safety Report 4323806-6 (Version None)
Quarter: 2004Q1

REPORT INFORMATION
  Report Type: 
  Country: None (occurrence: None)
  Receive Date: 20040323
  Receipt Date: 20040317
  Transmission Date: 20041129
  Serious: Yes (Death, Other)
  Sender: FDA-Public Use
  Company Number: 200415881BWH

PATIENT
  Age: 83 Year
  Sex: Female
  Weight: 69.8 kg

DRUGS (1)
  1. TRASYLOL [Suspect]
     Indication: CORONARY ARTERY SURGERY
     Dosage: INTRAVENOUS
     Route: 042
     Dates: start: 20040121

REACTIONS (2)
  - CORONARY ARTERY OCCLUSION [None]
  - HYPOTENSION [None]
